FAERS Safety Report 6263083-2 (Version None)
Quarter: 2009Q3

REPORT INFORMATION
  Report Type: 
  Country: None (occurrence: None)
  Receive Date: 20090710
  Receipt Date: 20071212
  Transmission Date: 20100115
  Serious: Yes (Other)
  Sender: FDA-Public Use
  Company Number: US-ASTRAZENECA-2006UW07742

PATIENT
  Age: 64 Year
  Sex: Male
  Weight: 74.8 kg

DRUGS (29)
  1. SEROQUEL [Suspect]
     Indication: BIPOLAR DISORDER
     Route: 048
     Dates: start: 19980101, end: 20060101
  2. SEROQUEL [Suspect]
     Indication: SCHIZOPHRENIA
     Route: 048
     Dates: start: 19980101, end: 20060101
  3. SEROQUEL [Suspect]
     Route: 048
     Dates: start: 19900101
  4. SEROQUEL [Suspect]
     Route: 048
     Dates: start: 19900101
  5. SEROQUEL [Suspect]
     Dosage: 150MG-400 MG
     Route: 048
     Dates: start: 20040603
  6. SEROQUEL [Suspect]
     Dosage: 150MG-400 MG
     Route: 048
     Dates: start: 20040603
  7. OXYCONTIN [Concomitant]
     Indication: BACK PAIN
  8. VASOTEC [Concomitant]
  9. PROCARDIA [Concomitant]
     Dosage: 30-60 MG
  10. PROMETHAZINE W/COD [Concomitant]
     Dosage: 6.25-10 MG/5
  11. HUMULIN 70/30 [Concomitant]
     Indication: TYPE 1 DIABETES MELLITUS
     Dosage: 30 UNITS EVERY MORNING , 20 UNITS EVERY NIGHT
  12. TYLENOL [Concomitant]
     Indication: PAIN
     Dosage: 1 TABLET TWO TIMES A DAY , 2 TABLET EVERY MORNING
     Route: 048
  13. INDERAL [Concomitant]
  14. ASPIRIN [Concomitant]
     Route: 048
  15. VALIUM [Concomitant]
     Indication: DEPRESSION
     Dosage: 2.5-5 MG TWO TIMES A DAY , 10 MG
     Route: 048
  16. VALIUM [Concomitant]
     Indication: TACHYPHRENIA
     Dosage: 2.5-5 MG TWO TIMES A DAY , 10 MG
     Route: 048
  17. VALIUM [Concomitant]
     Indication: ANXIETY
     Dosage: 2.5-5 MG TWO TIMES A DAY , 10 MG
     Route: 048
  18. PLAVIX [Concomitant]
  19. VERELAN [Concomitant]
  20. MS CONTIN [Concomitant]
     Route: 048
  21. NORVASC [Concomitant]
     Indication: HYPERTENSION
     Dosage: 5-10 MG DAILY
     Route: 048
  22. ZESTRIL [Concomitant]
     Indication: HYPERTENSION
     Dosage: 10-20 MG DAILY
     Route: 048
  23. COLACE [Concomitant]
     Route: 048
  24. VICODIN [Concomitant]
     Indication: BACK PAIN
     Dosage: 5/500
     Route: 048
  25. ULTRAM [Concomitant]
  26. DETROL LA [Concomitant]
  27. FLOMAX [Concomitant]
     Route: 048
  28. MYLANTA [Concomitant]
     Indication: ABDOMINAL DISCOMFORT
     Route: 048
  29. LORATADINE [Concomitant]
     Indication: RHINITIS ALLERGIC
     Route: 048

REACTIONS (4)
  - DIABETES MELLITUS [None]
  - INSULIN-REQUIRING TYPE 2 DIABETES MELLITUS [None]
  - NEUROPATHY PERIPHERAL [None]
  - RETINOPATHY [None]
